FAERS Safety Report 16686496 (Version 1)
Quarter: 2019Q3

REPORT INFORMATION
  Report Type: Report from Study
  Country: US (occurrence: US)
  Receive Date: 20190809
  Receipt Date: 20190809
  Transmission Date: 20191004
  Serious: Yes (Other)
  Sender: FDA-Public Use
  Company Number: US-HORIZON-KRY-0478-2019

PATIENT
  Age: 73 Year
  Sex: Male

DRUGS (3)
  1. KRYSTEXXA [Suspect]
     Active Substance: PEGLOTICASE
     Indication: GOUT
     Dosage: 8 MG IV Q2WEEKS
     Dates: start: 20190619, end: 20190717
  2. GLIMEPIRIDE. [Concomitant]
     Active Substance: GLIMEPIRIDE
  3. COLCRYS [Concomitant]
     Active Substance: COLCHICINE
     Dosage: TIW

REACTIONS (5)
  - Bronchospasm [Unknown]
  - Pulmonary oedema [Unknown]
  - Gout [Unknown]
  - Blood uric acid increased [Unknown]
  - Cough [Not Recovered/Not Resolved]
